FAERS Safety Report 6285846-X (Version None)
Quarter: 2009Q3

REPORT INFORMATION
  Report Type: 
  Country: None (occurrence: None)
  Receive Date: 20090724
  Receipt Date: 20090716
  Transmission Date: 20100115
  Serious: Yes (Life-Threatening)
  Sender: FDA-Public Use
  Company Number: TCI2009A02649

PATIENT
  Age: 68 Year
  Sex: Male

DRUGS (7)
  1. TAKEPRON OD TABLETS 30 (LANSOPRAZOLE) [Suspect]
     Indication: GASTRIC ULCER HAEMORRHAGE
     Dosage: 30 MG (30 MG, 1 IN 1 D) PER ORAL
     Route: 048
     Dates: start: 20090521, end: 20090702
  2. URSODIOL [Concomitant]
  3. LIVACT (AMINO ACIDS NOS) [Concomitant]
  4. LASIX [Concomitant]
  5. LASIX [Concomitant]
  6. SOLDACTONE (POTASSIUM CANRENOATE) [Concomitant]
  7. ALDACTONE [Concomitant]

REACTIONS (7)
  - AGRANULOCYTOSIS [None]
  - ALTERED STATE OF CONSCIOUSNESS [None]
  - ARTERIAL RUPTURE [None]
  - EOSINOPHIL COUNT INCREASED [None]
  - GASTRIC ULCER HAEMORRHAGE [None]
  - HEPATIC CIRRHOSIS [None]
  - SEPTIC SHOCK [None]
